FAERS Safety Report 17179810 (Version 1)
Quarter: 2019Q4

REPORT INFORMATION
  Report Type: Spontaneous
  Country: US (occurrence: US)
  Receive Date: 20191220
  Receipt Date: 20191220
  Transmission Date: 20200122
  Serious: Yes (Other)
  Sender: FDA-Public Use
  Company Number: US-ROCHE-2495451

PATIENT
  Age: 63 Year
  Sex: Female
  Weight: 88.08 kg

DRUGS (1)
  1. ERIVEDGE [Suspect]
     Active Substance: VISMODEGIB
     Indication: BASAL CELL CARCINOMA
     Route: 048
     Dates: start: 20190913

REACTIONS (1)
  - Autonomic nervous system imbalance [Unknown]

NARRATIVE: CASE EVENT DATE: 20191108
